FAERS Safety Report 10924913 (Version 2)
Quarter: 2015Q2

REPORT INFORMATION
  Report Type: Spontaneous
  Country: US (occurrence: US)
  Receive Date: 20150318
  Receipt Date: 20150524
  Transmission Date: 20150821
  Serious: No
  Sender: FDA-Public Use
  Company Number: US-JNJFOC-20120813422

PATIENT
  Age: 66 Year
  Sex: Male

DRUGS (4)
  1. FIBRATES [Concomitant]
     Active Substance: UNSPECIFIED INGREDIENT
     Indication: BLOOD CHOLESTEROL
     Dosage: USED FOR YEARS
     Route: 065
  2. NIZORAL A-D [Suspect]
     Active Substance: KETOCONAZOLE
     Route: 061
  3. SELENIUM SULFIDE. [Concomitant]
     Active Substance: SELENIUM SULFIDE
     Indication: TINEA VERSICOLOUR
     Dosage: 3-4 MONTHS; 2.5 % SHAMPOO USED ONCE DAILY OFF AND ON
     Route: 065
  4. NIZORAL A-D [Suspect]
     Active Substance: KETOCONAZOLE
     Indication: FUNGAL INFECTION
     Dosage: HALF DOLLAR SIZE
     Route: 061

REACTIONS (3)
  - Incorrect dose administered [Unknown]
  - Therapeutic response unexpected [Unknown]
  - Product use issue [Unknown]
